FAERS Safety Report 18688028 (Version 1)
Quarter: 2020Q4

REPORT INFORMATION
  Report Type: Spontaneous
  Country: US (occurrence: US)
  Receive Date: 20201231
  Receipt Date: 20201231
  Transmission Date: 20210114
  Serious: Yes (Death, Hospitalization)
  Sender: FDA-Public Use
  Company Number: US-ABBVIE-20K-163-3713786-00

PATIENT
  Age: 74 Year
  Sex: Male

DRUGS (1)
  1. IMBRUVICA [Suspect]
     Active Substance: IBRUTINIB
     Indication: WALDENSTROM^S MACROGLOBULINAEMIA
     Route: 048

REACTIONS (5)
  - Gastrointestinal mucormycosis [Recovering/Resolving]
  - Gastrointestinal ulcer haemorrhage [Recovering/Resolving]
  - Renal failure [Fatal]
  - Respiratory failure [Fatal]
  - Escherichia bacteraemia [Unknown]
